FAERS Safety Report 10965846 (Version 1)
Quarter: 2015Q1

REPORT INFORMATION
  Report Type: Spontaneous
  Country: US (occurrence: US)
  Receive Date: 20150330
  Receipt Date: 20150330
  Transmission Date: 20150721
  Serious: Yes (Other)
  Sender: FDA-Public Use
  Company Number: US-UCBSA-2015009656

PATIENT
  Sex: Female

DRUGS (41)
  1. ZAROXOLYN [Suspect]
     Active Substance: METOLAZONE
     Indication: PRODUCT USED FOR UNKNOWN INDICATION
     Dosage: UNK
  2. DIGOXIN. [Concomitant]
     Active Substance: DIGOXIN
     Indication: ATRIAL FLUTTER
     Dosage: 0.5 MG, ONCE DAILY (QD); MORNING
  3. LOPRESSOR [Concomitant]
     Active Substance: METOPROLOL TARTRATE
     Indication: ATRIAL FLUTTER
     Dosage: 50 MG, 2X/DAY (BID)
  4. RELAFEN [Concomitant]
     Active Substance: NABUMETONE
     Indication: PRODUCT USED FOR UNKNOWN INDICATION
  5. NAPROSYN [Concomitant]
     Active Substance: NAPROXEN
     Indication: PRODUCT USED FOR UNKNOWN INDICATION
  6. FLEXERIL [Concomitant]
     Active Substance: CYCLOBENZAPRINE HYDROCHLORIDE
     Indication: MUSCLE SPASMS
     Dosage: 5 MG, ONCE DAILY (QD) AT BEDTIME
  7. SYMBICORT [Concomitant]
     Active Substance: BUDESONIDE\FORMOTEROL FUMARATE DIHYDRATE
     Indication: ASTHMA
     Dosage: 2 PUFFS, 2X/DAY (BID)
  8. CENTRUM [Concomitant]
     Active Substance: VITAMINS
     Indication: SUPPLEMENTATION THERAPY
     Dosage: 1 DF, ONCE DAILY (QD)
  9. VITAMIN B12 [Concomitant]
     Active Substance: CYANOCOBALAMIN
     Indication: SUPPLEMENTATION THERAPY
     Dosage: 2500 ?G, 4X/DAY (QID)
     Route: 060
  10. ERYTHROMYCIN. [Concomitant]
     Active Substance: ERYTHROMYCIN
     Indication: PRODUCT USED FOR UNKNOWN INDICATION
  11. RISPERIDON [Concomitant]
     Active Substance: RISPERIDONE
     Indication: PRODUCT USED FOR UNKNOWN INDICATION
  12. SUDAFED [Concomitant]
     Active Substance: PSEUDOEPHEDRINE HYDROCHLORIDE
     Indication: NASAL CONGESTION
     Dosage: 60 MG, AS NEEDED (PRN) EVERY 4-6 HOURS
  13. BENGAY ARTHRITIS PAIN RELIEVING [Concomitant]
     Active Substance: MENTHOL\METHYL SALICYLATE
     Indication: PAIN
     Dosage: UNK, AS NEEDED (PRN)
  14. ZOFRAN [Concomitant]
     Active Substance: ONDANSETRON HYDROCHLORIDE
     Indication: PRODUCT USED FOR UNKNOWN INDICATION
  15. AMBIEN [Concomitant]
     Active Substance: ZOLPIDEM TARTRATE
     Indication: PRODUCT USED FOR UNKNOWN INDICATION
  16. SYNTHROID [Concomitant]
     Active Substance: LEVOTHYROXINE SODIUM
     Indication: HYPOTHYROIDISM
     Dosage: 137 ?G, ONCE DAILY (QD)
  17. ZANAFLEX [Concomitant]
     Active Substance: TIZANIDINE HYDROCHLORIDE
     Indication: MUSCLE SPASMS
     Dosage: 4 MG,UPTO 2X DAILY
  18. MAXALT [Concomitant]
     Active Substance: RIZATRIPTAN BENZOATE
     Indication: MIGRAINE
     Dosage: STRENGTH: 10 MG, UPTO 3 TABLETS IN 24 HOURS (ONE TABLET THEN ONE TABLET 2 HOURS LATER IF NEEDED
  19. COUMADIN [Concomitant]
     Active Substance: WARFARIN SODIUM
     Indication: ATRIAL FLUTTER
     Dosage: 5 MG, ONCE DAILY (QD)
  20. LASIX [Concomitant]
     Active Substance: FUROSEMIDE
     Indication: OEDEMA
     Dosage: 20 MG, ONCE DAILY (QD)
  21. RANITIDINE [Concomitant]
     Active Substance: RANITIDINE\RANITIDINE HYDROCHLORIDE
     Indication: GASTROOESOPHAGEAL REFLUX DISEASE
     Dosage: 150 MG, ONCE DAILY (QD)
  22. IMODIUM [Concomitant]
     Active Substance: LOPERAMIDE HYDROCHLORIDE
     Indication: BOWEL MOVEMENT IRREGULARITY
     Dosage: UNK, AS NEEDED (PRN);STRENTH: 2 MG, 2 TABS AT ONSET OF DIARRHOEA AND THEN 1 TABLET AFTER EACH BOWEL
  23. ALBUTEROL. [Concomitant]
     Active Substance: ALBUTEROL
     Indication: PRODUCT USED FOR UNKNOWN INDICATION
  24. INFLUENZA VACCINE [Concomitant]
     Active Substance: INFLUENZA VIRUS VACCINE
     Indication: PRODUCT USED FOR UNKNOWN INDICATION
  25. DEPAKOTE [Concomitant]
     Active Substance: DIVALPROEX SODIUM
     Indication: MANIA
     Dosage: UNK UNK, 3X/DAY (TID); STRENGTH: 500 MG TABLET, 2 TABLET IN MORNING 1 AT AFTERNOON AND 2 AT NIGHT
  26. HYDROCORTISONE. [Concomitant]
     Active Substance: HYDROCORTISONE
     Indication: ADDISON^S DISEASE
     Dosage: 10 MG, 4X/DAY (QID)
  27. VITAMIN C [Concomitant]
     Active Substance: ASCORBIC ACID
     Indication: SUPPLEMENTATION THERAPY
     Dosage: 1000 MG, 2X/DAY (BID)
  28. VITAMIN D3 [Concomitant]
     Active Substance: CHOLECALCIFEROL
     Indication: SUPPLEMENTATION THERAPY
     Dosage: 50000 IU, WEEKLY (QW)
  29. AUGMENTINE [Concomitant]
     Active Substance: AMOXICILLIN\CLAVULANATE POTASSIUM
     Indication: PRODUCT USED FOR UNKNOWN INDICATION
  30. CIPRO [Concomitant]
     Active Substance: CIPROFLOXACIN HYDROCHLORIDE
     Indication: PRODUCT USED FOR UNKNOWN INDICATION
  31. OXYCODONE/APAP [Concomitant]
     Active Substance: ACETAMINOPHEN\OXYCODONE HYDROCHLORIDE
     Indication: PAIN
     Dosage: 1 DF, 6X/DAY, STRENGTH: 10 MG/325 MG
  32. NEXIUM [Concomitant]
     Active Substance: ESOMEPRAZOLE MAGNESIUM
     Indication: GASTROOESOPHAGEAL REFLUX DISEASE
     Dosage: 40 MG, ONCE DAILY (QD)
  33. POTASSIUM CHLORIDE. [Concomitant]
     Active Substance: POTASSIUM CHLORIDE
     Indication: BLOOD POTASSIUM DECREASED
     Dosage: 20 MEQ, ONCE DAILY (QD)
  34. TETANUS VACCINE [Concomitant]
     Active Substance: CLOSTRIDIUM TETANI TOXOID ANTIGEN (FORMALDEHYDE INACTIVATED)
     Indication: PRODUCT USED FOR UNKNOWN INDICATION
  35. ZYPREXA [Concomitant]
     Active Substance: OLANZAPINE
     Indication: MANIA
     Dosage: 20 MG, ONCE DAILY (QD) AT 5.00 PM
  36. CYTOMEL [Concomitant]
     Active Substance: LIOTHYRONINE SODIUM
     Indication: HYPOTHYROIDISM
     Dosage: 25 ?G, ONCE DAILY (QD)
  37. TRAZODONE [Concomitant]
     Active Substance: TRAZODONE HYDROCHLORIDE
     Indication: INSOMNIA
     Dosage: 100 MG, ONCE DAILY (QD), STRENGTH: 50 MG 2 TABLETS AT BEDTIME
  38. METFORMIN [Concomitant]
     Active Substance: METFORMIN HYDROCHLORIDE
     Indication: DIABETES MELLITUS
     Dosage: 500 MG, 2X/DAY (BID)
  39. BENADRYL [Concomitant]
     Active Substance: DIPHENHYDRAMINE HYDROCHLORIDE
     Indication: HYPERSENSITIVITY
     Dosage: 50 MG, AS NEEDED (PRN) EVERY TWO HOURS
  40. SEROQUEL [Concomitant]
     Active Substance: QUETIAPINE FUMARATE
     Indication: PRODUCT USED FOR UNKNOWN INDICATION
  41. IBUPROFEN. [Concomitant]
     Active Substance: IBUPROFEN
     Indication: PRODUCT USED FOR UNKNOWN INDICATION

REACTIONS (2)
  - Renal failure [Unknown]
  - Hypotension [Unknown]
